FAERS Safety Report 20443102 (Version 1)
Quarter: 2022Q1

REPORT INFORMATION
  Report Type: Report from Study
  Country: CA (occurrence: None)
  Receive Date: 20220208
  Receipt Date: 20220208
  Transmission Date: 20220423
  Serious: Yes (Other)
  Sender: FDA-Public Use
  Company Number: CA-PFIZER INC-202101850262

PATIENT
  Age: 54 Year
  Sex: Female

DRUGS (3)
  1. METHOTREXATE [Suspect]
     Active Substance: METHOTREXATE
     Indication: Product used for unknown indication
     Route: 065
  2. LEFLUNOMIDE [Suspect]
     Active Substance: LEFLUNOMIDE
     Indication: Product used for unknown indication
     Route: 065
  3. SULFASALAZINE [Concomitant]
     Active Substance: SULFASALAZINE
     Route: 065

REACTIONS (9)
  - Drug ineffective [Unknown]
  - Liver function test increased [Unknown]
  - Arthralgia [Unknown]
  - Arthritis [Unknown]
  - Chills [Unknown]
  - Illness [Unknown]
  - Pyrexia [Unknown]
  - Tuberculosis [Unknown]
  - Mycobacterium tuberculosis complex test positive [Unknown]
